FAERS Safety Report 7766718-8 (Version None)
Quarter: 2011Q3

REPORT INFORMATION
  Report Type: 
  Country: None (occurrence: None)
  Receive Date: 20110919
  Receipt Date: 20110912
  Transmission Date: 20111222
  Serious: Yes (Hospitalization)
  Sender: FDA-Public Use
  Company Number: CIP11000044

PATIENT
  Age: 80 Year
  Sex: Female

DRUGS (4)
  1. ASACOL [Suspect]
     Indication: COLITIS
     Dosage: 1200 MG, THREE TIMES A DAILY, ORAL
     Route: 048
     Dates: start: 20101101, end: 20101227
  2. VITAMIN D [Concomitant]
  3. BENAZEPRIL HYDROCHLORIDE [Concomitant]
  4. ASCORBIC ACID [Concomitant]

REACTIONS (11)
  - TREMOR [None]
  - CHILLS [None]
  - BODY TEMPERATURE INCREASED [None]
  - HEART RATE IRREGULAR [None]
  - URTICARIA [None]
  - VIRAL INFECTION [None]
  - FEELING COLD [None]
  - DRUG HYPERSENSITIVITY [None]
  - DIARRHOEA [None]
  - STRESS [None]
  - NO THERAPEUTIC RESPONSE [None]
